FAERS Safety Report 10408858 (Version 2)
Quarter: 2014Q3

REPORT INFORMATION
  Report Type: Report from Study
  Country: FR (occurrence: FR)
  Receive Date: 20140826
  Receipt Date: 20140828
  Transmission Date: 20150326
  Serious: Yes (Hospitalization)
  Sender: FDA-Public Use
  Company Number: FR-ROCHE-1453555

PATIENT
  Age: 47 Year
  Sex: Female
  Weight: 48 kg

DRUGS (5)
  1. PACLITAXEL. [Suspect]
     Active Substance: PACLITAXEL
     Indication: BREAST CANCER
     Dosage: LAST DOSE PRIOR TO SAE: 12/AUG/2014
     Route: 042
     Dates: start: 20140414, end: 20140819
  2. DIFFU K [Concomitant]
     Active Substance: POTASSIUM CHLORIDE
     Dosage: 2 CAPLETS OF 600MG, 3 TIMES DAILY
     Route: 065
     Dates: start: 20140808
  3. RO 5479599 (ANTI-HER3 MAB) [Suspect]
     Active Substance: INVESTIGATIONAL PRODUCT
     Indication: BREAST CANCER
     Dosage: LAST DOSE PRIOR TO SAE: 12/AUG/2014.
     Route: 042
     Dates: start: 20140415
  4. PERTUZUMAB [Suspect]
     Active Substance: PERTUZUMAB
     Dosage: DOSE AS PER PROTOCOL.
     Route: 042
     Dates: start: 20140414
  5. PERTUZUMAB [Suspect]
     Active Substance: PERTUZUMAB
     Indication: BREAST CANCER
     Dosage: LAST DOSE PRIOR TO SAE: 12/AUG/2014.
     Route: 042

REACTIONS (1)
  - Hypokalaemia [Recovered/Resolved]

NARRATIVE: CASE EVENT DATE: 20140819
